FAERS Safety Report 6176497-6 (Version None)
Quarter: 2009Q2

REPORT INFORMATION
  Report Type: 
  Country: None (occurrence: None)
  Receive Date: 20090501
  Receipt Date: 20090424
  Transmission Date: 20091009
  Serious: Yes (Hospitalization)
  Sender: FDA-Public Use
  Company Number: PHHY2009GB03759

PATIENT
  Sex: Female

DRUGS (4)
  1. CLOZARIL [Suspect]
     Indication: SCHIZOPHRENIA
     Dosage: 375 MG
     Dates: start: 19960612
  2. CLOZARIL [Suspect]
     Dosage: UNK
  3. LITHIUM CARBONATE [Concomitant]
  4. DEPAKOTE [Concomitant]

REACTIONS (1)
  - RENAL FAILURE [None]
